FAERS Safety Report 5592656-5 (Version None)
Quarter: 2008Q1

REPORT INFORMATION
  Report Type: 
  Country: None (occurrence: None)
  Receive Date: 20080115
  Receipt Date: 20071219
  Transmission Date: 20080703
  Serious: No
  Sender: FDA-Public Use
  Company Number: US-BOEHRINGER INGELHEIM PHARMACEUTICALS, INC.-2007-BP-26548BP

PATIENT
  Age: 70 Year
  Sex: Male

DRUGS (1)
  1. MICARDIS [Suspect]
     Indication: RENAL DISORDER
     Route: 048
     Dates: start: 20071215

REACTIONS (4)
  - DIZZINESS [None]
  - HEADACHE [None]
  - NERVOUSNESS [None]
  - THINKING ABNORMAL [None]
